FAERS Safety Report 9470180 (Version 1)
Quarter: 2013Q3

REPORT INFORMATION
  Report Type: Spontaneous
  Country: US (occurrence: US)
  Receive Date: 20130822
  Receipt Date: 20130822
  Transmission Date: 20140515
  Serious: No
  Sender: FDA-Public Use
  Company Number: US-COVIDIEN/TYCO HEALTHCARE/MALLINCKRODT-T201303742

PATIENT
  Age: 32 Year
  Sex: Male

DRUGS (3)
  1. GABLOFEN [Suspect]
     Indication: MUSCLE SPASTICITY
     Dosage: UNK
     Route: 037
  2. DANTRIUM [Concomitant]
     Indication: PRODUCT USED FOR UNKNOWN INDICATION
     Route: 048
  3. VALIUM                             /00017001/ [Concomitant]
     Indication: PRODUCT USED FOR UNKNOWN INDICATION
     Route: 048

REACTIONS (3)
  - Muscle spasticity [Unknown]
  - Pain [Unknown]
  - Sleep disorder [Unknown]
